FAERS Safety Report 5716397-6 (Version None)
Quarter: 2008Q2

REPORT INFORMATION
  Report Type: 
  Country: None (occurrence: None)
  Receive Date: 20080424
  Receipt Date: 20080414
  Transmission Date: 20081010
  Serious: Yes (Other)
  Sender: FDA-Public Use
  Company Number: PHHY2008GB06090

PATIENT
  Age: 46 Year
  Sex: Female

DRUGS (5)
  1. GLEEVEC [Suspect]
     Indication: CHRONIC MYELOID LEUKAEMIA
     Dosage: 400 MG, QD
     Route: 048
     Dates: start: 20040108
  2. GLEEVEC [Suspect]
     Dosage: 300 UNK, UNK
  3. GLEEVEC [Suspect]
     Dosage: 200 MG, QD
  4. GLEEVEC [Suspect]
     Dosage: 400 MG, QD
     Route: 048
  5. ALLOPURINOL [Concomitant]
     Dates: start: 20040108, end: 20040506

REACTIONS (8)
  - ABORTION INDUCED [None]
  - DIARRHOEA [None]
  - EAR PAIN [None]
  - FATIGUE [None]
  - HEADACHE [None]
  - MUSCLE SPASMS [None]
  - PHARYNGOLARYNGEAL PAIN [None]
  - PLATELET COUNT DECREASED [None]
